FAERS Safety Report 4485023-9 (Version None)
Quarter: 2004Q3

REPORT INFORMATION
  Report Type: 
  Country: None (occurrence: None)
  Receive Date: 20040921
  Receipt Date: 20040217
  Transmission Date: 20050211
  Serious: Yes (Death)
  Sender: FDA-Public Use
  Company Number: 163-20785-04020496

PATIENT
  Age: 82 Year
  Sex: Female

DRUGS (2)
  1. THALOMID [Suspect]
     Indication: OVARIAN CANCER
     Dosage: 100 MG, DAILY, ORAL
     Route: 048
     Dates: start: 20021105, end: 20030725
  2. THALOMID [Suspect]
     Indication: OVARIAN CANCER
     Dosage: 100 MG, DAILY, ORAL
     Route: 048
     Dates: start: 20020506, end: 20031002

REACTIONS (2)
  - DEATH [None]
  - DISEASE PROGRESSION [None]
